FAERS Safety Report 8349700 (Version 2)
Quarter: 2013Q2

REPORT INFORMATION
  Report Type: Spontaneous
  Country: US (occurrence: US)
  Receive Date: 20120123
  Receipt Date: 20130430
  Transmission Date: 20140414
  Serious: Yes (Other)
  Sender: FDA-Public Use
  Company Number: US-ROCHE-792826

PATIENT
  Age: 25 Year
  Sex: Male
  Weight: 65.83 kg

DRUGS (5)
  1. ACCUTANE [Suspect]
     Indication: ACNE
     Route: 048
     Dates: start: 19990601, end: 20000118
  2. ACCUTANE [Suspect]
     Route: 048
     Dates: start: 20010322, end: 20010831
  3. ASPIRIN [Concomitant]
  4. TYLENOL [Concomitant]
  5. ADVIL [Concomitant]

REACTIONS (10)
  - Crohn^s disease [Unknown]
  - Inflammatory bowel disease [Unknown]
  - Colitis ulcerative [Unknown]
  - Intestinal ulcer [Unknown]
  - Depression [Unknown]
  - Intestinal obstruction [Unknown]
  - Suicidal ideation [Unknown]
  - Lip dry [Unknown]
  - Joint stiffness [Unknown]
  - Anaemia [Unknown]
